FAERS Safety Report 14996760 (Version 1)
Quarter: 2018Q2

REPORT INFORMATION
  Report Type: Report from Study
  Country: US (occurrence: US)
  Receive Date: 20180611
  Receipt Date: 20180611
  Transmission Date: 20180711
  Serious: Yes (Hospitalization, Other)
  Sender: FDA-Public Use
  Company Number: US-TEVA-2018-US-866411

PATIENT
  Age: 28 Year
  Sex: Female

DRUGS (3)
  1. COPAXONE [Suspect]
     Active Substance: GLATIRAMER ACETATE
     Route: 058
     Dates: start: 20171024, end: 20180503
  2. COPAXONE [Suspect]
     Active Substance: GLATIRAMER ACETATE
     Route: 058
     Dates: start: 20110307
  3. COPAXONE [Suspect]
     Active Substance: GLATIRAMER ACETATE
     Indication: MULTIPLE SCLEROSIS
     Route: 058
     Dates: start: 20150302, end: 20170122

REACTIONS (14)
  - Contusion [Unknown]
  - Multiple sclerosis [Not Recovered/Not Resolved]
  - Dysuria [Not Recovered/Not Resolved]
  - Fall [Unknown]
  - Gait disturbance [Not Recovered/Not Resolved]
  - Paralysis [Recovering/Resolving]
  - Blindness [Recovering/Resolving]
  - Cognitive disorder [Unknown]
  - Functional gastrointestinal disorder [Unknown]
  - Balance disorder [Not Recovered/Not Resolved]
  - Bladder dysfunction [Not Recovered/Not Resolved]
  - Urinary tract infection [Unknown]
  - Pain [Unknown]
  - Nystagmus [Unknown]

NARRATIVE: CASE EVENT DATE: 201712
